FAERS Safety Report 25523374 (Version 1)
Quarter: 2025Q3

REPORT INFORMATION
  Report Type: Spontaneous
  Country: US (occurrence: US)
  Receive Date: 20250707
  Receipt Date: 20250707
  Transmission Date: 20251020
  Serious: No
  Sender: LUPIN
  Company Number: US-LUPIN PHARMACEUTICALS INC.-2025-05602

PATIENT
  Age: 75 Year
  Weight: 63.492 kg

DRUGS (1)
  1. ALBUTEROL SULFATE [Suspect]
     Active Substance: ALBUTEROL SULFATE
     Indication: Asthma
     Dosage: 2 PUFFS, QD

REACTIONS (7)
  - Drug dose omission by device [Unknown]
  - Wrong technique in device usage process [Unknown]
  - Product lot number issue [Unknown]
  - Product expiration date issue [Unknown]
  - Incorrect dose administered by device [Unknown]
  - Treatment noncompliance [Unknown]
  - No adverse event [Unknown]
